FAERS Safety Report 8607308-4 (Version None)
Quarter: 2012Q3

REPORT INFORMATION
  Report Type: 
  Country: None (occurrence: None)
  Receive Date: 20120807
  Receipt Date: 20120725
  Transmission Date: 20120928
  Serious: Yes (Other)
  Sender: FDA-Public Use
  Company Number: 2012AP002284

PATIENT
  Sex: Female

DRUGS (6)
  1. LEVOFLOXACIN [Suspect]
     Indication: DISSEMINATED TUBERCULOSIS
  2. LEVOFLOXACIN [Suspect]
     Indication: OFF LABEL USE
  3. PYRAZINAMIDE [Concomitant]
  4. ISONIAZID [Suspect]
     Indication: DISSEMINATED TUBERCULOSIS
  5. SIROLIMUS (RAPAMUNE) [Concomitant]
  6. ETHAMBUTOL HYDROCHLORIDE [Concomitant]

REACTIONS (3)
  - ARTHRALGIA [None]
  - OFF LABEL USE [None]
  - DRUG-INDUCED LIVER INJURY [None]
